FAERS Safety Report 8256940-9 (Version None)
Quarter: 2012Q2

REPORT INFORMATION
  Report Type: 
  Country: None (occurrence: None)
  Receive Date: 20120403
  Receipt Date: 20120326
  Transmission Date: 20120825
  Serious: Yes (Other)
  Sender: FDA-Public Use
  Company Number: CA-JNJFOC-20120312606

PATIENT
  Sex: Female
  Weight: 74.5 kg

DRUGS (1)
  1. REMICADE [Suspect]
     Indication: RHEUMATOID ARTHRITIS
     Route: 042
     Dates: start: 20100928

REACTIONS (5)
  - NECK PAIN [None]
  - CONTUSION [None]
  - EXCORIATION [None]
  - BACK PAIN [None]
  - ROAD TRAFFIC ACCIDENT [None]
